FAERS Safety Report 5828536-7 (Version None)
Quarter: 2008Q3

REPORT INFORMATION
  Report Type: 
  Country: None (occurrence: None)
  Receive Date: 20080731
  Receipt Date: 20080716
  Transmission Date: 20090109
  Serious: Yes (Death)
  Sender: FDA-Public Use
  Company Number: US-GENENTECH-210655

PATIENT
  Age: 65 Year
  Sex: Male

DRUGS (5)
  1. RITUXAN [Suspect]
     Indication: NON-HODGKIN'S LYMPHOMA
     Dosage: 375 MG/M2, Q3W
     Dates: start: 20000601, end: 20001001
  2. CYCLOPHOSPHAMIDE [Suspect]
     Indication: NON-HODGKIN'S LYMPHOMA
     Dosage: UNK, Q3W
     Dates: start: 20000601, end: 20001001
  3. VINCRISTINE [Suspect]
     Indication: NON-HODGKIN'S LYMPHOMA
     Dosage: UNK, Q3W
     Dates: start: 20000601, end: 20001001
  4. DOXORUBICIN HCL [Concomitant]
     Indication: NON-HODGKIN'S LYMPHOMA
     Dosage: UNK, Q3W
     Dates: end: 20001001
  5. PREDNISONE [Concomitant]
     Indication: NON-HODGKIN'S LYMPHOMA
     Dosage: UNK, Q3W
     Dates: start: 20000901, end: 20001001

REACTIONS (4)
  - HYPERSENSITIVITY [None]
  - MULTI-ORGAN FAILURE [None]
  - PULMONARY ALVEOLAR HAEMORRHAGE [None]
  - SCHAMBERG'S DISEASE [None]
